FAERS Safety Report 5725365-X (Version None)
Quarter: 2008Q2

REPORT INFORMATION
  Report Type: 
  Country: None (occurrence: None)
  Receive Date: 20080429
  Receipt Date: 20080414
  Transmission Date: 20081010
  Serious: Yes (Hospitalization, Other)
  Sender: FDA-Public Use
  Company Number: 47385

PATIENT
  Age: 37 Year
  Sex: Male

DRUGS (1)
  1. DOXYCYCLINE FOR INJ. USP 100MG - BEDFORD LABS, INC. [Suspect]
     Indication: LUNG INFECTION

REACTIONS (3)
  - HEPATIC NECROSIS [None]
  - HEPATITIS ACUTE [None]
  - SARCOIDOSIS [None]
